FAERS Safety Report 23380810 (Version 1)
Quarter: 2024Q1

REPORT INFORMATION
  Report Type: Spontaneous
  Country: US (occurrence: US)
  Receive Date: 20240109
  Receipt Date: 20240109
  Transmission Date: 20240410
  Serious: No
  Sender: FDA-Public Use
  Company Number: US-AUROBINDO-AUR-APL-2023-043388

PATIENT
  Sex: Female

DRUGS (2)
  1. CLOZAPINE [Suspect]
     Active Substance: CLOZAPINE
     Indication: Product used for unknown indication
     Dosage: 100 MILLIGRAM, (PATIENT IS ON 350 MILLIGRAM DOSE IT^S NOT AN 350 TABLET)
     Route: 065
  2. CLOZAPINE [Suspect]
     Active Substance: CLOZAPINE
     Dosage: 50 MILLIGRAM, (PATIENT IS ON 350 MILLIGRAM DOSE IT^S NOT AN 350 TABLET)
     Route: 065

REACTIONS (1)
  - Drug level increased [Unknown]
